FAERS Safety Report 18735956 (Version 1)
Quarter: 2021Q1

REPORT INFORMATION
  Report Type: Spontaneous
  Country: US (occurrence: US)
  Receive Date: 20210113
  Receipt Date: 20210113
  Transmission Date: 20210419
  Serious: Yes (Hospitalization)
  Sender: FDA-Public Use
  Company Number: None

PATIENT
  Age: 44 Year
  Sex: Female
  Weight: 74.4 kg

DRUGS (1)
  1. INJECTAFER [Suspect]
     Active Substance: FERRIC CARBOXYMALTOSE
     Indication: PRODUCT USED FOR UNKNOWN INDICATION
     Dosage: ?          OTHER FREQUENCY:WEEKLY;?
     Route: 042
     Dates: start: 20210104

REACTIONS (4)
  - Erythema [None]
  - Pruritus [None]
  - Urticaria [None]
  - Flushing [None]

NARRATIVE: CASE EVENT DATE: 20210111
